FAERS Safety Report 23673825 (Version 1)
Quarter: 2024Q1

REPORT INFORMATION
  Report Type: Spontaneous
  Country: US (occurrence: US)
  Receive Date: 20240326
  Receipt Date: 20240326
  Transmission Date: 20240410
  Serious: No
  Sender: FDA-Public Use
  Company Number: US-ABBVIE-5688694

PATIENT
  Age: 27 Year
  Sex: Female

DRUGS (8)
  1. LILETTA [Suspect]
     Active Substance: LEVONORGESTREL
     Indication: Contraception
     Dosage: TIME INTERVAL: AS NECESSARY
     Route: 015
     Dates: start: 20240222
  2. CYTOTEC [Concomitant]
     Active Substance: MISOPROSTOL
     Indication: Product used for unknown indication
     Dosage: 200 MCG TABLET
     Dates: start: 20240129
  3. FERROUS SULFATE [Concomitant]
     Active Substance: FERROUS SULFATE
     Indication: Product used for unknown indication
     Dosage: 325 MG (65 MG IRON) DR/EC TABLET, 1 TABLET BY MOUTH 2 TIMES A DAY WITH ORANGE JUICE OR VITAMIN C.
     Route: 048
     Dates: start: 20230810, end: 20230909
  4. MOTRIN [Concomitant]
     Active Substance: IBUPROFEN
     Indication: Pain
     Dosage: 800 MG TABLET, EVERY 6 TO 8 HOURS AS NEEDED
     Route: 048
     Dates: start: 20230810, end: 20230909
  5. VITAMIN D3 [Concomitant]
     Active Substance: CHOLECALCIFEROL
     Indication: Product used for unknown indication
     Dosage: 2000 UNITS TABLET
     Route: 048
     Dates: start: 20220203
  6. ORTHO CYCLEN [Concomitant]
     Active Substance: ETHINYL ESTRADIOL\NORGESTIMATE
     Indication: Product used for unknown indication
     Dosage: 35 MG-MCG PER TABLET
     Route: 048
     Dates: start: 20240105
  7. COLACE [Concomitant]
     Active Substance: DOCUSATE SODIUM
     Indication: Product used for unknown indication
     Dosage: 100 MG CAPSULE
     Route: 048
     Dates: start: 20230810, end: 20230909
  8. ADALAT CC [Concomitant]
     Active Substance: NIFEDIPINE
     Indication: Product used for unknown indication
     Dosage: 60 MG 24 HR TABLET EVERY MORNING BEFORE BREAKFAST
     Route: 048
     Dates: start: 20230811, end: 20230910

REACTIONS (2)
  - Device dislocation [Unknown]
  - Device expulsion [Unknown]

NARRATIVE: CASE EVENT DATE: 20240319
